FAERS Safety Report 4330116-X (Version None)
Quarter: 2004Q1

REPORT INFORMATION
  Report Type: 
  Country: None (occurrence: None)
  Receive Date: 20040329
  Receipt Date: 20031215
  Transmission Date: 20041129
  Serious: No
  Sender: FDA-Public Use
  Company Number: 03P-163-0244572-00

PATIENT
  Age: 66 Year
  Sex: Female

DRUGS (8)
  1. HUMIRA [Suspect]
     Indication: RHEUMATOID ARTHRITIS
     Dosage: 40 MG, 1 IN 2 WK, SUBCUTANEOUS
     Route: 058
     Dates: start: 20031124
  2. ALENDRONATE SODUIM [Concomitant]
  3. LEVOTHYROXINE SODIUM [Concomitant]
  4. SODIUM CHLORIDE INJ [Concomitant]
  5. OMEPRAZOLE [Concomitant]
  6. MULTI-VITAMINS [Concomitant]
  7. IRON [Concomitant]
  8. CYANOCOBALAMIN [Concomitant]

REACTIONS (1)
  - INJECTION SITE RASH [None]
